FAERS Safety Report 18671760 (Version 1)
Quarter: 2020Q4

REPORT INFORMATION
  Report Type: Spontaneous
  Country: US (occurrence: US)
  Receive Date: 20201229
  Receipt Date: 20201229
  Transmission Date: 20210114
  Serious: Yes (Death, Hospitalization)
  Sender: FDA-Public Use
  Company Number: US-JNJFOC-20201247272

PATIENT
  Age: 52 Year
  Sex: Female

DRUGS (14)
  1. DURAGESIC [Suspect]
     Active Substance: FENTANYL
     Indication: PRODUCT USED FOR UNKNOWN INDICATION
     Route: 048
  2. ALCOHOL. [Suspect]
     Active Substance: ALCOHOL
     Indication: PRODUCT USED FOR UNKNOWN INDICATION
     Route: 048
  3. ALCOHOL. [Suspect]
     Active Substance: ALCOHOL
     Route: 065
  4. METHAMPHETAMINE HCL [Suspect]
     Active Substance: METHAMPHETAMINE HYDROCHLORIDE
     Route: 065
  5. COCAINE [Suspect]
     Active Substance: COCAINE
     Route: 065
  6. NORDIAZEPAM [Concomitant]
     Active Substance: NORDAZEPAM
  7. DURAGESIC [Suspect]
     Active Substance: FENTANYL
     Route: 065
  8. METHADONE [Suspect]
     Active Substance: METHADONE HYDROCHLORIDE
     Route: 065
  9. METHAMPHETAMINE HCL [Suspect]
     Active Substance: METHAMPHETAMINE HYDROCHLORIDE
     Indication: PRODUCT USED FOR UNKNOWN INDICATION
     Route: 048
  10. DIAZEPAM. [Suspect]
     Active Substance: DIAZEPAM
     Indication: PRODUCT USED FOR UNKNOWN INDICATION
     Route: 048
  11. DIAZEPAM. [Suspect]
     Active Substance: DIAZEPAM
     Route: 065
  12. COCAINE [Suspect]
     Active Substance: COCAINE
     Indication: PRODUCT USED FOR UNKNOWN INDICATION
     Route: 048
  13. METHADONE [Suspect]
     Active Substance: METHADONE HYDROCHLORIDE
     Indication: PRODUCT USED FOR UNKNOWN INDICATION
     Route: 048
  14. AMPHETAMINE [Concomitant]
     Active Substance: AMPHETAMINE

REACTIONS (2)
  - Toxicity to various agents [Fatal]
  - Intentional product use issue [Fatal]
